FAERS Safety Report 6575091-2 (Version None)
Quarter: 2010Q1

REPORT INFORMATION
  Report Type: 
  Country: None (occurrence: None)
  Receive Date: 20100209
  Receipt Date: 20100201
  Transmission Date: 20100710
  Serious: Yes (Hospitalization, Other)
  Sender: FDA-Public Use
  Company Number: US-AMGEN-QUU390023

PATIENT
  Sex: Male

DRUGS (1)
  1. ENBREL [Suspect]
     Indication: RHEUMATOID ARTHRITIS
     Route: 058

REACTIONS (7)
  - CARDIAC FIBRILLATION [None]
  - COLONIC POLYP [None]
  - CONTUSION [None]
  - CORONARY ARTERY OCCLUSION [None]
  - DIALYSIS [None]
  - INCREASED TENDENCY TO BRUISE [None]
  - RECTAL HAEMORRHAGE [None]
